FAERS Safety Report 5147377-X (Version None)
Quarter: 2006Q4

REPORT INFORMATION
  Report Type: 
  Country: None (occurrence: None)
  Receive Date: 20061103
  Receipt Date: 20061018
  Transmission Date: 20070319
  Serious: Yes (Hospitalization)
  Sender: FDA-Public Use
  Company Number: US-2006-023000

PATIENT
  Age: 33 Year
  Sex: Male
  Weight: 78.5 kg

DRUGS (5)
  1. BETASERON [Suspect]
     Indication: RELAPSING-REMITTING MULTIPLE SCLEROSIS
     Dosage: SEE IMAGE
     Route: 058
     Dates: start: 20040723
  2. BACLOFEN [Concomitant]
  3. OXYBUTYNIN CHLORIDE [Concomitant]
  4. MODAFINIL [Concomitant]
  5. OMEPRAZOLE (OMEPRAZOLE) CAPSULE [Concomitant]

REACTIONS (1)
  - BLOOD GLUCOSE DECREASED [None]
